FAERS Safety Report 12990616 (Version 1)
Quarter: 2016Q4

REPORT INFORMATION
  Report Type: Spontaneous
  Country: US (occurrence: US)
  Receive Date: 20161201
  Receipt Date: 20161201
  Transmission Date: 20170207
  Serious: No
  Sender: FDA-Public Use
  Company Number: None

PATIENT
  Age: 82 Year

DRUGS (1)
  1. METHOTREXATE TABLETS [Suspect]
     Active Substance: METHOTREXATE

REACTIONS (4)
  - Oedema [None]
  - Swelling face [None]
  - Product label issue [None]
  - Overdose [None]
